FAERS Safety Report 5176103-3 (Version None)
Quarter: 2006Q4

REPORT INFORMATION
  Report Type: 
  Country: None (occurrence: None)
  Receive Date: 20061215
  Receipt Date: 20060629
  Transmission Date: 20070319
  Serious: No
  Sender: FDA-Public Use
  Company Number: US-AMGEN-KDL184712

PATIENT
  Age: 67 Year
  Sex: Male

DRUGS (2)
  1. ENBREL [Suspect]
     Indication: PSORIATIC ARTHROPATHY
  2. HUMIRA [Concomitant]

REACTIONS (5)
  - ANAPHYLACTOID REACTION [None]
  - DYSPNOEA [None]
  - FATIGUE [None]
  - INFLAMMATION [None]
  - INFLUENZA LIKE ILLNESS [None]
